FAERS Safety Report 4344771-1 (Version None)
Quarter: 2004Q2

REPORT INFORMATION
  Report Type: 
  Country: None (occurrence: None)
  Receive Date: 20040423
  Receipt Date: 20031103
  Transmission Date: 20050107
  Serious: No
  Sender: FDA-Public Use
  Company Number: US-GLAXOSMITHKLINE-A0432591A

PATIENT
  Sex: Male

DRUGS (1)
  1. LEUKERAN [Suspect]
     Indication: ILL-DEFINED DISORDER
     Dosage: 27TAB EVERY TWO WEEKS
     Route: 048

REACTIONS (1)
  - VISUAL DISTURBANCE [None]
